FAERS Safety Report 19188488 (Version 3)
Quarter: 2021Q2

REPORT INFORMATION
  Report Type: Report from Study
  Country: US (occurrence: US)
  Receive Date: 20210428
  Receipt Date: 20210610
  Transmission Date: 20210717
  Serious: Yes (Hospitalization)
  Sender: FDA-Public Use
  Company Number: US-ROCHE-2815637

PATIENT
  Age: 49 Year
  Sex: Female
  Weight: 72.5 kg

DRUGS (7)
  1. ATEZOLIZUMAB. [Suspect]
     Active Substance: ATEZOLIZUMAB
     Indication: PANCREATIC CARCINOMA METASTATIC
     Dosage: ON 14/APR/2021, SHE RECEIVED MOST RECENT DOSE OF ATEZOLIZUMAB (1680 MG) PRIOR TO ONSET OF SERIOUS AD
     Route: 041
     Dates: start: 20210316
  2. GEMCITABINE. [Suspect]
     Active Substance: GEMCITABINE
     Indication: PANCREATIC CARCINOMA METASTATIC
     Dosage: ON 14/APR/2021, SHE RECEIVED MOST RECENT DOSE OF GEMCITABINE (1000 MG) PRIOR TO ONSET OF SERIOUS ADV
     Route: 042
     Dates: start: 20210316
  3. CAFFEINE. [Concomitant]
     Active Substance: CAFFEINE
  4. TOCILIZUMAB. [Suspect]
     Active Substance: TOCILIZUMAB
     Indication: PANCREATIC CARCINOMA METASTATIC
     Dosage: ON 14/APR/2021, SHE RECEIVED MOST RECENT DOSE OF TOCILIZUMAB (8 MG) PRIOR TO ONSET OF SERIOUS ADVERS
     Route: 042
     Dates: start: 20210316
  5. AMPHETAMINE [Concomitant]
     Active Substance: AMPHETAMINE
  6. NAB?PACLITAXEL [Suspect]
     Active Substance: PACLITAXEL
     Indication: PANCREATIC CARCINOMA METASTATIC
     Dosage: ON 14/APR/2021, SHE RECEIVED MOST RECENT DOSE OF ALBUMIN BOUND PACLITAXEL (125 MG) PRIOR TO ONSET OF
     Route: 042
     Dates: start: 20210316
  7. COCAINE [Concomitant]
     Active Substance: COCAINE

REACTIONS (1)
  - Peripheral sensory neuropathy [Not Recovered/Not Resolved]

NARRATIVE: CASE EVENT DATE: 20210411
